FAERS Safety Report 7906814-5 (Version None)
Quarter: 2011Q4

REPORT INFORMATION
  Report Type: 
  Country: None (occurrence: None)
  Receive Date: 20111109
  Receipt Date: 20111109
  Transmission Date: 20120403
  Serious: Yes (Hospitalization)
  Sender: FDA-Public Use
  Company Number: None

PATIENT
  Sex: Male

DRUGS (11)
  1. LETAIRIS [Suspect]
     Indication: PULMONARY HYPERTENSION
     Dosage: AMBRISENTAN 10MG DAILY ORALLY
     Route: 048
     Dates: start: 20111002, end: 20111006
  2. LETAIRIS [Suspect]
     Indication: PORTAL HYPERTENSION
     Dosage: AMBRISENTAN 10MG DAILY ORALLY
     Route: 048
     Dates: start: 20111002, end: 20111006
  3. OMEPRAZOLE [Concomitant]
  4. SPIRONOLACTONE [Suspect]
     Dosage: 100MG DAILY ORALLY
     Route: 048
     Dates: start: 20111004
  5. SILDENAFIL [Concomitant]
  6. RIFAXIMIN [Concomitant]
  7. PROPRANOLOL [Concomitant]
  8. KLOR-CON [Concomitant]
  9. LACTULOSE [Concomitant]
  10. THIAMINE HCL [Concomitant]
  11. ASCORBIC ACID [Concomitant]

REACTIONS (10)
  - COUGH [None]
  - DYSPNOEA [None]
  - HEADACHE [None]
  - CONTUSION [None]
  - FACIAL PAIN [None]
  - ERYTHEMA [None]
  - FLUSHING [None]
  - HYPERAESTHESIA [None]
  - SWELLING FACE [None]
  - PNEUMONIA [None]
